FAERS Safety Report 9520222 (Version 2)
Quarter: 2013Q3

REPORT INFORMATION
  Report Type: Report from Study
  Country: US (occurrence: US)
  Receive Date: 20130912
  Receipt Date: 20130912
  Transmission Date: 20140515
  Serious: Yes (Other)
  Sender: FDA-Public Use
  Company Number: US-TEVA-415806USA

PATIENT
  Age: 65 Year
  Sex: Female

DRUGS (9)
  1. COPAXONE [Suspect]
     Indication: MULTIPLE SCLEROSIS
     Dates: start: 20070413
  2. ALEVE [Concomitant]
     Dosage: 220 MILLIGRAM DAILY;
  3. LYRICA [Concomitant]
     Dosage: 300 MILLIGRAM DAILY;
  4. TIZANIDINE [Concomitant]
     Dosage: 1 MILLIGRAM DAILY;
  5. VAGIFEM [Concomitant]
     Dosage: 2.8571 MICROGRAM DAILY;
  6. FLAXSEED OIL [Concomitant]
  7. MULTIVITAMIN [Concomitant]
  8. CALCIUM WITH VITAMIN D [Concomitant]
  9. VITAMIN D [Concomitant]
     Dosage: 2000 IU (INTERNATIONAL UNIT) DAILY;

REACTIONS (1)
  - Type 2 diabetes mellitus [Recovering/Resolving]
